FAERS Safety Report 24078466 (Version 1)
Quarter: 2024Q3

REPORT INFORMATION
  Report Type: Spontaneous
  Country: HR (occurrence: HR)
  Receive Date: 20240711
  Receipt Date: 20240711
  Transmission Date: 20241016
  Serious: Yes (Death, Other)
  Sender: ASTELLAS
  Company Number: HR-ASTELLAS-2024US019249

PATIENT
  Sex: Male

DRUGS (6)
  1. XOSPATA [Interacting]
     Active Substance: GILTERITINIB
     Indication: Acute myelomonocytic leukaemia
     Dosage: 120 MG, ONCE DAILY, (TOTAL)
     Route: 065
     Dates: start: 20240329
  2. XOSPATA [Interacting]
     Active Substance: GILTERITINIB
     Indication: FLT3 gene mutation
  3. SITAGLIPTIN [Interacting]
     Active Substance: SITAGLIPTIN
     Indication: Product used for unknown indication
     Dosage: 50 MG, ONCE DAILY, (1X1 ), (BEFORE BREAKFAST)
     Route: 065
     Dates: start: 202401
  4. MAGNESIUM [Concomitant]
     Active Substance: MAGNESIUM
     Indication: Product used for unknown indication
     Dosage: UNK UNK, UNKNOWN FREQ.
     Route: 048
  5. METFORMIN [Concomitant]
     Active Substance: METFORMIN HYDROCHLORIDE
     Indication: Product used for unknown indication
     Dosage: 500 MG, ONCE DAILY, (1X1 )
     Route: 065
  6. GLYCEMIC CONTROL [Concomitant]
     Indication: Product used for unknown indication
     Dosage: UNK UNK, UNKNOWN FREQ.
     Route: 065

REACTIONS (7)
  - Death [Fatal]
  - Subarachnoid haemorrhage [Unknown]
  - Haematoma [Unknown]
  - Periorbital haematoma [Unknown]
  - Acute myeloid leukaemia [Unknown]
  - General physical health deterioration [Unknown]
  - Drug interaction [Unknown]

NARRATIVE: CASE EVENT DATE: 20240415
